FAERS Safety Report 20767961 (Version 1)
Quarter: 2022Q2

REPORT INFORMATION
  Report Type: Spontaneous
  Country: GB (occurrence: GB)
  Receive Date: 20220429
  Receipt Date: 20220429
  Transmission Date: 20220720
  Serious: Yes (Disabling, Other)
  Sender: FDA-Public Use
  Company Number: GB-MHRA-MED-202204191215253340-FWNNV

PATIENT
  Age: 56 Year
  Sex: Female
  Weight: 50 kg

DRUGS (3)
  1. ALENDRONIC ACID [Suspect]
     Active Substance: ALENDRONIC ACID
     Indication: Osteoporosis
     Dosage: UNK UNK, EVERY WEEK
     Route: 065
  2. CITALOPRAM [Concomitant]
     Active Substance: CITALOPRAM HYDROBROMIDE
     Indication: Depressed mood
     Dosage: UNK
     Route: 065
     Dates: start: 2014
  3. ESTROGEL [Concomitant]
     Active Substance: ESTRADIOL
     Indication: Postmenopause
     Dosage: UNK
     Route: 065
     Dates: start: 2014

REACTIONS (1)
  - Limb asymmetry [Not Recovered/Not Resolved]

NARRATIVE: CASE EVENT DATE: 20211104
